FAERS Safety Report 7460227-1 (Version None)
Quarter: 2011Q2

REPORT INFORMATION
  Report Type: 
  Country: None (occurrence: None)
  Receive Date: 20110505
  Receipt Date: 20110426
  Transmission Date: 20111010
  Serious: Yes (Other)
  Sender: FDA-Public Use
  Company Number: US-NOVOPROD-327225

PATIENT
  Sex: Female
  Weight: 64.399 kg

DRUGS (1)
  1. NOVOLOG MIX 70/30 [Suspect]
     Indication: TYPE 1 DIABETES MELLITUS
     Dosage: UNKNOWN
     Dates: start: 19960101, end: 20110422

REACTIONS (6)
  - BLOOD GLUCOSE INCREASED [None]
  - HYPERTENSION [None]
  - GINGIVAL INFECTION [None]
  - DRUG INEFFECTIVE [None]
  - PROTEINURIA [None]
  - SWELLING FACE [None]
